FAERS Safety Report 9230643 (Version 1)
Quarter: 2013Q2

REPORT INFORMATION
  Report Type: Spontaneous
  Country: BE (occurrence: BE)
  Receive Date: 20130415
  Receipt Date: 20130415
  Transmission Date: 20140414
  Serious: Yes (Death, Hospitalization)
  Sender: FDA-Public Use
  Company Number: BE-B.I. PHARMACEUTICALS,INC./RIDGEFIELD-2013-BL-00180BL

PATIENT
  Sex: Female

DRUGS (9)
  1. PRADAXA [Suspect]
     Indication: ATRIAL FIBRILLATION
     Dosage: 220 MG
     Dates: start: 20121231, end: 20130126
  2. BURINEX [Concomitant]
     Indication: RENAL FAILURE
  3. LASIX [Concomitant]
     Indication: RENAL FAILURE
  4. BISOPROLOL [Concomitant]
     Indication: HYPERTENSION
  5. MOXONIDINE [Concomitant]
     Indication: HYPERTENSION
  6. ALOPURINOL [Concomitant]
     Indication: GOUT
  7. ALOPURINOL [Concomitant]
     Indication: HYPERURICAEMIA
  8. PARACETAMOL [Concomitant]
     Indication: PAIN
  9. CRESTOR [Concomitant]
     Indication: BLOOD CHOLESTEROL

REACTIONS (3)
  - Rectal haemorrhage [Fatal]
  - Epistaxis [Fatal]
  - Renal impairment [Fatal]
